FAERS Safety Report 24695054 (Version 1)
Quarter: 2024Q4

REPORT INFORMATION
  Report Type: Spontaneous
  Country: US (occurrence: None)
  Receive Date: 20241204
  Receipt Date: 20241204
  Transmission Date: 20250115
  Serious: No
  Sender: Public
  Company Number: None

PATIENT
  Sex: Female

DRUGS (2)
  1. HUMIRA [Suspect]
     Active Substance: ADALIMUMAB
     Indication: Rheumatoid arthritis
     Dosage: FREQ: INJECT 1 PEN (40 MG TOTAL) UNDER THE SKIN (SUBCUTANEOUS INJECTION) EVERY 7 DAYS- HOLD FOR ?ILL
     Route: 058
     Dates: start: 20190507
  2. METHOTREXATE SODIUM [Concomitant]
     Active Substance: METHOTREXATE SODIUM

REACTIONS (1)
  - Surgery [None]
